FAERS Safety Report 25156443 (Version 3)
Quarter: 2025Q2

REPORT INFORMATION
  Report Type: Spontaneous
  Country: US (occurrence: US)
  Receive Date: 20250403
  Receipt Date: 20250621
  Transmission Date: 20250716
  Serious: No
  Sender: SANOFI AVENTIS
  Company Number: US-SA-2025SA094830

PATIENT
  Age: 57 Year
  Sex: Female

DRUGS (8)
  1. KEVZARA [Suspect]
     Active Substance: SARILUMAB
     Indication: Polymyalgia rheumatica
     Dosage: 200 MG, QOW
     Route: 058
     Dates: start: 20250319, end: 202505
  2. ONDANSETRON [Concomitant]
     Active Substance: ONDANSETRON
  3. PERIDEX [Concomitant]
     Active Substance: CHLORHEXIDINE GLUCONATE
  4. LIDOCAINE HYDROCHLORIDE [Concomitant]
     Active Substance: LIDOCAINE HYDROCHLORIDE
  5. HYDROCHLOROTHIAZIDE [Concomitant]
     Active Substance: HYDROCHLOROTHIAZIDE
  6. Folvite d [Concomitant]
  7. METHOTREXATE [Concomitant]
     Active Substance: METHOTREXATE
  8. HYDROXYCHLOROQUINE SULFATE [Concomitant]
     Active Substance: HYDROXYCHLOROQUINE SULFATE

REACTIONS (9)
  - Injection site pain [Not Recovered/Not Resolved]
  - Aphthous ulcer [Recovering/Resolving]
  - Dysphagia [Unknown]
  - Pain [Unknown]
  - Peripheral swelling [Unknown]
  - Arthropathy [Unknown]
  - Loss of personal independence in daily activities [Unknown]
  - Bradykinesia [Recovering/Resolving]
  - Bone pain [Recovering/Resolving]

NARRATIVE: CASE EVENT DATE: 20250101
